FAERS Safety Report 6924197-4 (Version None)
Quarter: 2010Q3

REPORT INFORMATION
  Report Type: 
  Country: None (occurrence: None)
  Receive Date: 20100813
  Receipt Date: 20100803
  Transmission Date: 20110219
  Serious: Yes (Other)
  Sender: FDA-Public Use
  Company Number: US-ABBOTT-10P-163-0661926-00

PATIENT
  Sex: Male
  Weight: 65.376 kg

DRUGS (1)
  1. NIASPAN [Suspect]
     Indication: DYSLIPIDAEMIA
     Dosage: DAILY
     Route: 048
     Dates: start: 20030101

REACTIONS (5)
  - BLADDER CANCER [None]
  - BLADDER MASS [None]
  - CATARACT [None]
  - DYSURIA [None]
  - HERNIA [None]
